FAERS Safety Report 4800925-9 (Version None)
Quarter: 2005Q4

REPORT INFORMATION
  Report Type: 
  Country: None (occurrence: None)
  Receive Date: 20051011
  Receipt Date: 20050923
  Transmission Date: 20060501
  Serious: Yes (Hospitalization)
  Sender: FDA-Public Use
  Company Number: 2005P1000445

PATIENT
  Age: 84 Year
  Sex: Female
  Weight: 75 kg

DRUGS (14)
  1. RETEVASE [Suspect]
     Indication: ACUTE MYOCARDIAL INFARCTION
     Dosage: IV
     Route: 042
     Dates: start: 20050614, end: 20050614
  2. ABCIXIMAB (ABCIXIMAB) [Suspect]
     Indication: ACUTE MYOCARDIAL INFARCTION
     Dosage: IV
     Route: 042
     Dates: start: 20050614
  3. SULFAMETHIZOLE TAB [Concomitant]
  4. LANSOPRAZOLE [Concomitant]
  5. POTASSIUM CHLORIDE [Concomitant]
  6. CLOPIDOGREL [Concomitant]
  7. CARVEDILOL [Concomitant]
  8. ALBYL-ENTEROSOLUBILE [Concomitant]
  9. FUROSEMIDE [Concomitant]
  10. TRANDOLAPRIL [Concomitant]
  11. GLIBENCLAMIDE [Concomitant]
  12. ASPIRIN [Concomitant]
  13. POTASSIUM [Concomitant]
  14. SIMVASTATIN [Concomitant]

REACTIONS (9)
  - BLOOD GLUCOSE DECREASED [None]
  - CEREBRAL INFARCTION [None]
  - DIZZINESS [None]
  - HYPOTENSION [None]
  - LEUKOCYTURIA [None]
  - MALAISE [None]
  - NAUSEA [None]
  - PYREXIA [None]
  - TACHYCARDIA [None]
